FAERS Safety Report 17754112 (Version 1)
Quarter: 2020Q2

REPORT INFORMATION
  Report Type: Spontaneous
  Country: US (occurrence: US)
  Receive Date: 20200506
  Receipt Date: 20200506
  Transmission Date: 20200714
  Serious: No
  Sender: FDA-Public Use
  Company Number: US-EMERGENT BIOSOLUTIONS,-20000227SP

PATIENT
  Sex: Female

DRUGS (1)
  1. NARCAN [Suspect]
     Active Substance: NALOXONE HYDROCHLORIDE
     Indication: NASAL CONGESTION
     Dosage: ONE DOSE IN EACH NOSTRIL (4 MG TWICE)
     Route: 045
     Dates: start: 20200308

REACTIONS (4)
  - Unintentional use for unapproved indication [Unknown]
  - Insomnia [Recovering/Resolving]
  - Piloerection [Recovering/Resolving]
  - Palpitations [Recovering/Resolving]

NARRATIVE: CASE EVENT DATE: 20200308
